FAERS Safety Report 6166671-7 (Version None)
Quarter: 2009Q2

REPORT INFORMATION
  Report Type: 
  Country: None (occurrence: None)
  Receive Date: 20090422
  Receipt Date: 20090417
  Transmission Date: 20091009
  Serious: Yes (Death, Hospitalization, Other)
  Sender: FDA-Public Use
  Company Number: 2008SP024315

PATIENT
  Age: 57 Year
  Sex: Male
  Weight: 53 kg

DRUGS (18)
  1. TEMODAL [Suspect]
     Dosage: 150 MG/M2;QD;PO;  200 MG/M2;QD;PO
     Route: 048
     Dates: start: 20061024, end: 20061028
  2. TEMODAL [Suspect]
     Dosage: 150 MG/M2;QD;PO;  200 MG/M2;QD;PO
     Route: 048
     Dates: start: 20061205, end: 20061209
  3. TEMODAL [Suspect]
     Dosage: 150 MG/M2;QD;PO;  200 MG/M2;QD;PO
     Route: 048
     Dates: start: 20070116, end: 20070120
  4. TEMODAL [Suspect]
     Dosage: 150 MG/M2;QD;PO;  200 MG/M2;QD;PO
     Route: 048
     Dates: start: 20070214, end: 20070218
  5. TEMODAL [Suspect]
     Dosage: 150 MG/M2;QD;PO;  200 MG/M2;QD;PO
     Route: 048
     Dates: start: 20070316, end: 20070320
  6. TEMODAL [Suspect]
     Dosage: 150 MG/M2;QD;PO;  200 MG/M2;QD;PO
     Route: 048
     Dates: start: 20070416, end: 20070420
  7. NEOPAREN (NO PREF.  NAME) [Suspect]
     Indication: GLIOBLASTOMA MULTIFORME
     Dosage: INDRP
     Route: 041
  8. BAKTAR [Concomitant]
  9. PREDNISOLONE [Concomitant]
  10. ALEVIATIN [Concomitant]
  11. GASTER [Concomitant]
  12. GLYCEOL [Concomitant]
  13. PREDONINE [Concomitant]
  14. GASTER [Concomitant]
  15. SOLDEM 3A [Concomitant]
  16. PRIMPERAN [Concomitant]
  17. CEFAMEZIN [Concomitant]
  18. LACTEC [Concomitant]

REACTIONS (6)
  - BLOOD LACTATE DEHYDROGENASE INCREASED [None]
  - BRAIN OEDEMA [None]
  - C-REACTIVE PROTEIN INCREASED [None]
  - GLIOBLASTOMA MULTIFORME [None]
  - HEPATIC FUNCTION ABNORMAL [None]
  - MALIGNANT NEOPLASM PROGRESSION [None]
